FAERS Safety Report 12354374 (Version 1)
Quarter: 2016Q2

REPORT INFORMATION
  Report Type: Spontaneous
  Country: FR (occurrence: FR)
  Receive Date: 20160511
  Receipt Date: 20160511
  Transmission Date: 20160815
  Serious: Yes (Hospitalization)
  Sender: FDA-Public Use
  Company Number: FR-RECORDATI RARE DISEASES-FR-R13005-16-00107

PATIENT
  Age: 11 Year
  Sex: Male
  Weight: 50 kg

DRUGS (13)
  1. COSMEGEN [Suspect]
     Active Substance: DACTINOMYCIN
     Indication: EWING^S SARCOMA
     Route: 042
     Dates: start: 20150511, end: 20150514
  2. CYCLOPHOSPHAMIDE. [Suspect]
     Active Substance: CYCLOPHOSPHAMIDE
     Indication: EWING^S SARCOMA
     Route: 065
     Dates: start: 20150602, end: 20151007
  3. MESNA. [Suspect]
     Active Substance: MESNA
     Route: 042
     Dates: start: 20150602, end: 20151007
  4. ETOPOSIDE. [Suspect]
     Active Substance: ETOPOSIDE
     Indication: EWING^S SARCOMA
     Route: 042
     Dates: start: 20150102, end: 20150423
  5. VINCRISTINE [Suspect]
     Active Substance: VINCRISTINE
     Indication: EWING^S SARCOMA
     Route: 065
     Dates: start: 20150102, end: 20150423
  6. VINCRISTINE [Suspect]
     Active Substance: VINCRISTINE
     Route: 065
     Dates: start: 20150511, end: 20150514
  7. MESNA. [Suspect]
     Active Substance: MESNA
     Indication: EWING^S SARCOMA
     Route: 042
     Dates: start: 20150102, end: 20150423
  8. IFOSFAMIDE. [Suspect]
     Active Substance: IFOSFAMIDE
     Indication: EWING^S SARCOMA
     Route: 042
     Dates: start: 20150102, end: 20150423
  9. IFOSFAMIDE. [Suspect]
     Active Substance: IFOSFAMIDE
     Route: 042
     Dates: start: 20150511, end: 20150514
  10. DOXORUBICIN [Suspect]
     Active Substance: DOXORUBICIN
     Indication: EWING^S SARCOMA
     Route: 042
     Dates: start: 20150102, end: 20150423
  11. MESNA. [Suspect]
     Active Substance: MESNA
     Route: 042
     Dates: start: 20150511, end: 20150514
  12. COSMEGEN [Suspect]
     Active Substance: DACTINOMYCIN
     Route: 042
     Dates: start: 20150602, end: 20151007
  13. VINCRISTINE [Suspect]
     Active Substance: VINCRISTINE
     Route: 065
     Dates: start: 20150602, end: 20151007

REACTIONS (3)
  - Cardiac failure [Recovering/Resolving]
  - Hepatic pain [Unknown]
  - Congestive cardiomyopathy [Not Recovered/Not Resolved]

NARRATIVE: CASE EVENT DATE: 20151104
